FAERS Safety Report 6710736-5 (Version None)
Quarter: 2010Q2

REPORT INFORMATION
  Report Type: 
  Country: None (occurrence: None)
  Receive Date: 20100504
  Receipt Date: 20100504
  Transmission Date: 20101027
  Serious: Yes (Life-Threatening, Hospitalization)
  Sender: FDA-Public Use
  Company Number: None

PATIENT
  Sex: Female
  Weight: 81.6475 kg

DRUGS (1)
  1. DARVOCET [Suspect]
     Indication: PROCEDURAL PAIN
     Dosage: 1 TABLETS ONE TIME PO
     Route: 048
     Dates: start: 20060721, end: 20060721

REACTIONS (5)
  - HEART RATE DECREASED [None]
  - LOSS OF CONSCIOUSNESS [None]
  - RESPIRATORY ARREST [None]
  - RESUSCITATION [None]
  - UNRESPONSIVE TO STIMULI [None]
